FAERS Safety Report 9158723 (Version 2)
Quarter: 2014Q1

REPORT INFORMATION
  Report Type: Spontaneous
  Country: US (occurrence: US)
  Receive Date: 20130312
  Receipt Date: 20140121
  Transmission Date: 20141002
  Serious: Yes (Other)
  Sender: FDA-Public Use
  Company Number: US-US-EMD SERONO, INC.-234824J08USA

PATIENT
  Sex: Female

DRUGS (3)
  1. REBIF [Suspect]
     Indication: MULTIPLE SCLEROSIS
     Route: 058
     Dates: start: 20050413
  2. REBIF [Suspect]
     Route: 058
     Dates: start: 2007
  3. REBIF [Suspect]
     Route: 058
     Dates: start: 201209

REACTIONS (2)
  - Crohn^s disease [Unknown]
  - Influenza like illness [Not Recovered/Not Resolved]
